FAERS Safety Report 16178221 (Version 2)
Quarter: 2019Q2

REPORT INFORMATION
  Report Type: Spontaneous
  Country: FR (occurrence: FR)
  Receive Date: 20190410
  Receipt Date: 20190501
  Transmission Date: 20190711
  Serious: Yes (Hospitalization)
  Sender: FDA-Public Use
  Company Number: FR-SUN PHARMACEUTICAL INDUSTRIES LTD-2019RR-204753

PATIENT
  Age: 53 Year
  Sex: Female

DRUGS (3)
  1. ILOMEDINE 0,1 MG/1 ML, SOLUTION INJECTABLE POUR PERFUSION [Suspect]
     Active Substance: ILOPROST TROMETHAMINE
     Indication: ARTERIAL THROMBOSIS
     Dosage: 1 DOSAGE FORM, DAILY
     Route: 042
     Dates: start: 20190222
  2. INNOHEP [Suspect]
     Active Substance: TINZAPARIN SODIUM
     Indication: PROPHYLAXIS
     Dosage: UNK
     Route: 058
     Dates: start: 20190225
  3. LANSOPRAZOLE. [Suspect]
     Active Substance: LANSOPRAZOLE
     Indication: PROPHYLAXIS
     Dosage: UNK
     Route: 048
     Dates: start: 20190224

REACTIONS (1)
  - Liver disorder [Not Recovered/Not Resolved]

NARRATIVE: CASE EVENT DATE: 20190312
